FAERS Safety Report 9454958 (Version 2)
Quarter: 2013Q4

REPORT INFORMATION
  Report Type: Spontaneous
  Country: US (occurrence: US)
  Receive Date: 20130813
  Receipt Date: 20131121
  Transmission Date: 20140711
  Serious: No
  Sender: FDA-Public Use
  Company Number: US-BIOGENIDEC-2013BI074057

PATIENT
  Age: 31 Year
  Sex: Female

DRUGS (10)
  1. TYSABRI [Suspect]
     Indication: MULTIPLE SCLEROSIS
     Route: 042
     Dates: start: 20070803, end: 20100604
  2. TYSABRI [Suspect]
     Indication: MULTIPLE SCLEROSIS
     Route: 042
     Dates: start: 20101207
  3. AVONEX [Concomitant]
     Indication: MULTIPLE SCLEROSIS
     Route: 030
     Dates: start: 20080701
  4. PROVIGIL [Concomitant]
  5. VITAMIN D3 [Concomitant]
  6. BACLOFEN [Concomitant]
  7. NEURONTIN [Concomitant]
  8. ZOLOFT [Concomitant]
  9. TRAMADOL [Concomitant]
  10. LORTAB [Concomitant]
     Route: 048

REACTIONS (13)
  - Balance disorder [Unknown]
  - Anxiety [Unknown]
  - Depression [Unknown]
  - Drug hypersensitivity [Unknown]
  - Ataxia [Unknown]
  - Urinary retention [Unknown]
  - Fatigue [Unknown]
  - Urinary tract infection [Unknown]
  - Sinusitis [Unknown]
  - Meniscus injury [Recovered/Resolved]
  - Pain in extremity [Not Recovered/Not Resolved]
  - Hypoaesthesia [Not Recovered/Not Resolved]
  - Knee operation [Recovered/Resolved]
